FAERS Safety Report 6417771-5 (Version None)
Quarter: 2009Q4

REPORT INFORMATION
  Report Type: 
  Country: None (occurrence: None)
  Receive Date: 20091028
  Receipt Date: 20091023
  Transmission Date: 20100525
  Serious: Yes (Life-Threatening, Hospitalization)
  Sender: FDA-Public Use
  Company Number: PT-JNJFOC-20091007195

PATIENT
  Sex: Male

DRUGS (3)
  1. INTELENCE [Suspect]
     Indication: HIV INFECTION
     Route: 048
  2. PREZISTA [Suspect]
     Indication: HIV INFECTION
     Route: 048
  3. RALTEGRAVIR [Concomitant]
     Indication: HIV INFECTION
     Route: 048

REACTIONS (1)
  - CEREBROVASCULAR ACCIDENT [None]
